FAERS Safety Report 25826446 (Version 5)
Quarter: 2025Q4

REPORT INFORMATION
  Report Type: Report from Study
  Country: EU (occurrence: EU)
  Receive Date: 20250920
  Receipt Date: 20251231
  Transmission Date: 20260117
  Serious: Yes (Death, Hospitalization, Other)
  Sender: ABBVIE
  Company Number: EU-ABBVIE-6465569

PATIENT
  Age: 77 Year
  Sex: Male

DRUGS (8)
  1. FOSCARBIDOPA\FOSLEVODOPA [Suspect]
     Active Substance: FOSCARBIDOPA\FOSLEVODOPA
     Indication: Parkinson^s disease
     Dosage: BASAL RATE 0.5 ML/H FROM 6 A.M. TO 10 P.M.?LOW BASAL RATE 0.25 ML/H FROM 10 P.M. TO 6 A.M.?HIGH D...
     Route: 058
     Dates: start: 20241126
  2. FOSCARBIDOPA\FOSLEVODOPA [Suspect]
     Active Substance: FOSCARBIDOPA\FOSLEVODOPA
     Dosage: CRN: 0.25ML/H, CR: 0.50ML/H, CRH: 0.55ML/H, ED: 0.30ML.
     Route: 058
  3. FOSCARBIDOPA\FOSLEVODOPA [Suspect]
     Active Substance: FOSCARBIDOPA\FOSLEVODOPA
     Dosage: CR: 0.50 ML/H, CRH: 0.65 ML/H, CRN: 0.30 ML/H, ED: 0.30 ML
     Route: 058
  4. ASPIRIN [Concomitant]
     Active Substance: ASPIRIN
     Indication: Product used for unknown indication
     Dosage: 1-0-0
  5. ATORVASTATIN [Concomitant]
     Active Substance: ATORVASTATIN
     Indication: Product used for unknown indication
     Dosage: 0-0-1
  6. CLOPIDOGREL [Concomitant]
     Active Substance: CLOPIDOGREL BISULFATE
     Indication: Product used for unknown indication
     Dosage: 1-0-0
  7. RUPATADINE [Concomitant]
     Active Substance: RUPATADINE
     Indication: Product used for unknown indication
     Dosage: 1-0-0
  8. ROPINIROLE [Concomitant]
     Active Substance: ROPINIROLE
     Indication: Product used for unknown indication
     Dosage: SUSTAINED-RELEASE 1-0-0

REACTIONS (24)
  - Death [Fatal]
  - Logorrhoea [Unknown]
  - Device loosening [Unknown]
  - Spinal stenosis [Not Recovered/Not Resolved]
  - Coma [Not Recovered/Not Resolved]
  - Euphoric mood [Unknown]
  - Reduced facial expression [Unknown]
  - Dysarthria [Unknown]
  - Muscle rigidity [Unknown]
  - Fine motor skill dysfunction [Unknown]
  - Dyspnoea [Unknown]
  - Camptocormia [Unknown]
  - Dysstasia [Unknown]
  - Diarrhoea [Recovered/Resolved]
  - Neck pain [Recovered/Resolved]
  - Loss of consciousness [Unknown]
  - Insomnia [Unknown]
  - Nausea [Recovered/Resolved]
  - Syncope [Unknown]
  - Overdose [Unknown]
  - Hospitalisation [Recovered/Resolved]
  - Disorganised speech [Unknown]
  - Parkinsonian gait [Unknown]
  - Gait disturbance [Unknown]

NARRATIVE: CASE EVENT DATE: 20250722
